FAERS Safety Report 6976711-0 (Version None)
Quarter: 2010Q3

REPORT INFORMATION
  Report Type: 
  Country: None (occurrence: None)
  Receive Date: 20100910
  Receipt Date: 20100827
  Transmission Date: 20110219
  Serious: Yes (Hospitalization)
  Sender: FDA-Public Use
  Company Number: US-ELI_LILLY_AND_COMPANY-US201006007654

PATIENT
  Sex: Female

DRUGS (5)
  1. FORTEO [Suspect]
     Indication: OSTEOPOROSIS
     Dosage: 20 UG, DAILY (1/D)
     Dates: start: 20100618
  2. ATIVAN [Concomitant]
  3. NEXIUM [Concomitant]
  4. PROZAC [Concomitant]
  5. FLEXERIL [Concomitant]

REACTIONS (3)
  - INCISION SITE COMPLICATION [None]
  - PAIN [None]
  - WOUND INFECTION STAPHYLOCOCCAL [None]
